FAERS Safety Report 8352131-1 (Version None)
Quarter: 2012Q2

REPORT INFORMATION
  Report Type: 
  Country: None (occurrence: None)
  Receive Date: 20120510
  Receipt Date: 20120510
  Transmission Date: 20120825
  Serious: Yes (Other)
  Sender: FDA-Public Use
  Company Number: None

PATIENT

DRUGS (1)
  1. LISTERINE WHITENING PRE-BRUSH RINSE CLEAN MINT (ORAL CARE PRODUCTS) LI [Suspect]
     Indication: PRODUCT USED FOR UNKNOWN INDICATION
     Dosage: AS RECOMMENDED ON THE LABEL, ABOUT TWO YEARS AGO

REACTIONS (4)
  - ORAL MUCOSAL EXFOLIATION [None]
  - THERAPEUTIC RESPONSE DECREASED [None]
  - ENAMEL ANOMALY [None]
  - TOOTH FRACTURE [None]
